FAERS Safety Report 8276507-6 (Version None)
Quarter: 2012Q2

REPORT INFORMATION
  Report Type: 
  Country: None (occurrence: None)
  Receive Date: 20120412
  Receipt Date: 20120124
  Transmission Date: 20120825
  Serious: No
  Sender: FDA-Public Use
  Company Number: US-GLAXOSMITHKLINE-A0957532A

PATIENT
  Age: 69 Year
  Sex: Male

DRUGS (5)
  1. EYE DROPS [Concomitant]
  2. CLONIDINE [Concomitant]
  3. JALYN [Suspect]
     Indication: BENIGN PROSTATIC HYPERPLASIA
     Dosage: 1CAP PER DAY
     Route: 048
     Dates: start: 20111208, end: 20111209
  4. AMLODIPINE [Concomitant]
  5. DIOVAN [Concomitant]

REACTIONS (2)
  - DIZZINESS [None]
  - BLOOD PRESSURE FLUCTUATION [None]
